FAERS Safety Report 7956678-9 (Version None)
Quarter: 2011Q4

REPORT INFORMATION
  Report Type: 
  Country: None (occurrence: None)
  Receive Date: 20111205
  Receipt Date: 20111125
  Transmission Date: 20120403
  Serious: Yes (Life-Threatening)
  Sender: FDA-Public Use
  Company Number: JP-PFIZER INC-2011160748

PATIENT
  Age: 62 Year
  Sex: Male

DRUGS (7)
  1. ZOSYN [Suspect]
     Indication: PNEUMONIA
     Dosage: 13.5 G, DAILY
     Route: 041
     Dates: start: 20110629, end: 20110701
  2. SIGMART [Concomitant]
     Indication: CARDIAC FAILURE CONGESTIVE
     Dosage: 96 MG, DAILY
     Route: 041
     Dates: start: 20110629, end: 20110708
  3. ASPIRIN [Concomitant]
     Indication: ACUTE MYOCARDIAL INFARCTION
     Dosage: 100 MG, DAILY
     Route: 048
     Dates: start: 20110629
  4. FUROSEMIDE [Concomitant]
     Indication: CARDIAC FAILURE CONGESTIVE
     Dosage: 40 MG, DAILY
     Route: 041
     Dates: start: 20110629, end: 20110629
  5. HEPARIN [Concomitant]
     Indication: ACUTE MYOCARDIAL INFARCTION
     Dosage: 1000 IU, DAILY
     Route: 041
     Dates: start: 20110629
  6. PLAVIX [Concomitant]
     Indication: ACUTE MYOCARDIAL INFARCTION
     Dosage: 75 MG, DAILY
     Route: 048
     Dates: start: 20110629
  7. LANSOPRAZOLE [Concomitant]
     Dosage: 15 MG, DAILY
     Route: 048
     Dates: start: 20110629

REACTIONS (1)
  - INTERSTITIAL LUNG DISEASE [None]
